FAERS Safety Report 5630295-8 (Version None)
Quarter: 2008Q1

REPORT INFORMATION
  Report Type: 
  Country: None (occurrence: None)
  Receive Date: 20080213
  Receipt Date: 20080129
  Transmission Date: 20080703
  Serious: Yes (Other)
  Sender: FDA-Public Use
  Company Number: GXKR2008US01264

PATIENT
  Age: 65 Year
  Sex: Male

DRUGS (6)
  1. CLONIDINE                             (CLONIDINE HYDROCHLORIDE) UNKNOW [Suspect]
     Dosage: 50 UG, THREE INJECTIONS, INJECTION NOS
  2. BUPIVACAINE                        (BUPIVACAINE) UNKNOWN [Suspect]
     Indication: ANAESTHESIA
     Dosage: 30 ML, THREE INJECTIONS, INJECTION NOS
  3. EPINEPHRINE                   (EPINEPHRINE) UNKNOWN [Suspect]
     Dosage: 1:400 000, THREE INJECTIONS, INJECTION NOS
  4. ANAESTHETICS              (NO INGREDIENTS/SUBSTANCES) [Suspect]
  5. FENTANYL [Concomitant]
  6. MIDAZOLAM HCL [Concomitant]

REACTIONS (11)
  - AUTOIMMUNE DISORDER [None]
  - CENTRAL NERVOUS SYSTEM INFLAMMATION [None]
  - MONOPARESIS [None]
  - MUSCLE ATROPHY [None]
  - NEUROMUSCULAR BLOCKADE [None]
  - PAIN [None]
  - PERIPHERAL NERVE INJURY [None]
  - POST PROCEDURAL COMPLICATION [None]
  - PROCEDURAL HYPOTENSION [None]
  - RADICULITIS BRACHIAL [None]
  - SENSORY LOSS [None]
